FAERS Safety Report 8255331-4 (Version None)
Quarter: 2012Q2

REPORT INFORMATION
  Report Type: 
  Country: None (occurrence: None)
  Receive Date: 20120403
  Receipt Date: 20120327
  Transmission Date: 20120825
  Serious: Yes (Other)
  Sender: FDA-Public Use
  Company Number: US-JNJFOC-20120200786

PATIENT
  Weight: 68.4 kg

DRUGS (19)
  1. CALCARB [Concomitant]
  2. ALL OTHER NON-THERAPEUTIC PRODUCTS [Concomitant]
  3. MIRALAX [Concomitant]
  4. XARELTO [Suspect]
     Indication: THROMBOSIS PROPHYLAXIS
     Route: 048
     Dates: start: 20120109, end: 20120119
  5. VITAMIN B-12 [Concomitant]
  6. ZOLPIDEM [Concomitant]
  7. ASPIRIN [Concomitant]
  8. VITAMIN D [Concomitant]
  9. FATTY ACIDS NOS [Concomitant]
  10. XARELTO [Suspect]
     Indication: KNEE ARTHROPLASTY
     Route: 048
     Dates: start: 20120109, end: 20120119
  11. TYLENOL [Concomitant]
  12. CIPROFLOXACIN HCL [Concomitant]
  13. LORTAB [Concomitant]
  14. COLACE [Concomitant]
  15. NEXIUM [Concomitant]
  16. IBUPROFEN [Concomitant]
  17. MILK OF MAGNESIA TAB [Concomitant]
  18. ATENOLOL [Concomitant]
  19. LISINOPRIL [Concomitant]

REACTIONS (3)
  - DEEP VEIN THROMBOSIS [None]
  - NAUSEA [None]
  - HEADACHE [None]
